FAERS Safety Report 19092105 (Version 4)
Quarter: 2021Q2

REPORT INFORMATION
  Report Type: Report from Study
  Country: PL (occurrence: PL)
  Receive Date: 20210405
  Receipt Date: 20210601
  Transmission Date: 20210717
  Serious: Yes (Death, Other)
  Sender: FDA-Public Use
  Company Number: PL-GLAXOSMITHKLINE-PL2021GSK073487

PATIENT
  Age: 66 Year
  Sex: Female

DRUGS (1)
  1. UMECLIDINIUM BR+VILANTEROL TRIFENATATE [Suspect]
     Active Substance: UMECLIDINIUM BROMIDE\VILANTEROL TRIFENATATE
     Indication: CHRONIC OBSTRUCTIVE PULMONARY DISEASE
     Dosage: 30 DOSES PER INHALER
     Route: 055
     Dates: start: 20180920, end: 202002

REACTIONS (1)
  - Death [Fatal]

NARRATIVE: CASE EVENT DATE: 20210310
